FAERS Safety Report 19666713 (Version 2)
Quarter: 2021Q3

REPORT INFORMATION
  Report Type: Report from Study
  Country: US (occurrence: US)
  Receive Date: 20210806
  Receipt Date: 20210820
  Transmission Date: 20211014
  Serious: Yes (Death, Hospitalization)
  Sender: FDA-Public Use
  Company Number: US-HBP-2021US022533

PATIENT
  Age: 93 Year
  Sex: Female

DRUGS (1)
  1. VALCHLOR [Suspect]
     Active Substance: MECHLORETHAMINE
     Indication: CUTANEOUS T-CELL LYMPHOMA
     Dosage: UNK, QD
     Route: 061
     Dates: end: 202107

REACTIONS (2)
  - Intentional dose omission [Unknown]
  - Hypovolaemic shock [Fatal]

NARRATIVE: CASE EVENT DATE: 202107
